FAERS Safety Report 11679701 (Version 2)
Quarter: 2015Q4

REPORT INFORMATION
  Report Type: Spontaneous
  Country: US (occurrence: US)
  Receive Date: 20151027
  Receipt Date: 20151104
  Transmission Date: 20160304
  Serious: No
  Sender: FDA-Public Use
  Company Number: US-ELI_LILLY_AND_COMPANY-US201010004512

PATIENT
  Age: 66 Year
  Sex: Female

DRUGS (5)
  1. FORTEO [Suspect]
     Active Substance: TERIPARATIDE
     Dosage: 20 UG, DAILY (1/D)
     Route: 065
  2. FORTEO [Suspect]
     Active Substance: TERIPARATIDE
     Indication: OSTEOPOROSIS
     Dosage: 20 UG, DAILY (1/D)
     Dates: start: 20100827
  3. FORTEO [Suspect]
     Active Substance: TERIPARATIDE
     Dosage: 20 UG, DAILY (1/D)
  4. FORTEO [Suspect]
     Active Substance: TERIPARATIDE
     Dosage: 20 UG, DAILY (1/D)
  5. CALCIUM [Concomitant]
     Active Substance: CALCIUM

REACTIONS (20)
  - Musculoskeletal pain [Recovering/Resolving]
  - Pain in extremity [Recovering/Resolving]
  - Contusion [Recovering/Resolving]
  - Blood calcium increased [Unknown]
  - Asthma [Recovered/Resolved]
  - Drug dose omission [Unknown]
  - Pain [Recovered/Resolved]
  - Wheezing [Unknown]
  - Fall [Recovered/Resolved]
  - Pain [Recovering/Resolving]
  - Injection site bruising [Recovered/Resolved]
  - Skin injury [Recovering/Resolving]
  - Injection site pain [Recovered/Resolved]
  - Abdominal discomfort [Recovered/Resolved]
  - Panic reaction [Unknown]
  - Breast pain [Recovering/Resolving]
  - Arthralgia [Recovered/Resolved]
  - Urine calcium increased [Unknown]
  - Musculoskeletal chest pain [Unknown]
  - Lung disorder [Unknown]

NARRATIVE: CASE EVENT DATE: 201010
